FAERS Safety Report 9563891 (Version 3)
Quarter: 2014Q1

REPORT INFORMATION
  Report Type: Spontaneous
  Country: US (occurrence: US)
  Receive Date: 20130927
  Receipt Date: 20140103
  Transmission Date: 20141002
  Serious: Yes (Other)
  Sender: FDA-Public Use
  Company Number: US-JNJFOC-20130908649

PATIENT
  Age: 57 Year
  Sex: Female
  Weight: 63.5 kg

DRUGS (1)
  1. VISINE [Suspect]
     Indication: POISONING
     Route: 048
     Dates: start: 20130910, end: 20130910

REACTIONS (3)
  - Malaise [Recovered/Resolved]
  - Toxicity to various agents [Unknown]
  - Crime [Unknown]
